FAERS Safety Report 18041230 (Version 3)
Quarter: 2020Q3

REPORT INFORMATION
  Report Type: Spontaneous
  Country: US (occurrence: US)
  Receive Date: 20200719
  Receipt Date: 20200725
  Transmission Date: 20201103
  Serious: Yes (Hospitalization)
  Sender: FDA-Public Use
  Company Number: US-UNITED THERAPEUTICS-UNT-2020-010644

PATIENT
  Age: 70 Year
  Sex: Female
  Weight: 63.04 kg

DRUGS (2)
  1. TYVASO [Suspect]
     Active Substance: TREPROSTINIL
     Dosage: 18?54 ?G, QID
  2. TYVASO [Suspect]
     Active Substance: TREPROSTINIL
     Indication: PULMONARY ARTERIAL HYPERTENSION
     Dosage: UNK
     Dates: start: 20200714

REACTIONS (7)
  - Dyspnoea [Unknown]
  - Dizziness [Unknown]
  - Presyncope [Unknown]
  - Vomiting [Unknown]
  - Nausea [Unknown]
  - Paraesthesia [Unknown]
  - Decreased appetite [Unknown]

NARRATIVE: CASE EVENT DATE: 202007
